FAERS Safety Report 4316372-2 (Version None)
Quarter: 2004Q1

REPORT INFORMATION
  Report Type: 
  Country: None (occurrence: None)
  Receive Date: 20040312
  Receipt Date: 20040312
  Transmission Date: 20041129
  Serious: Yes (Other)
  Sender: FDA-Public Use
  Company Number: None

PATIENT
  Age: 45 Year
  Sex: Female

DRUGS (8)
  1. TAXOL [Suspect]
     Indication: BREAST CANCER
     Dosage: IV
     Route: 042
     Dates: start: 20031121
  2. TAXOL [Suspect]
     Indication: BREAST CANCER
     Dosage: IV
     Route: 042
     Dates: start: 20031212
  3. TAXOL [Suspect]
     Indication: BREAST CANCER
     Dosage: IV
     Route: 042
     Dates: start: 20040102
  4. TAXOL [Suspect]
     Dosage: IV
     Route: 042
     Dates: start: 20040126
  5. TAXOL [Suspect]
     Dosage: IV
     Route: 042
     Dates: start: 20040130
  6. TAXOL [Suspect]
     Dosage: IV
     Route: 042
     Dates: start: 20040203
  7. TAXOL [Suspect]
     Dosage: IV
     Route: 042
     Dates: start: 20040206
  8. TAXOL [Suspect]
     Dosage: IV
     Route: 042
     Dates: start: 20040210

REACTIONS (4)
  - DISEASE PROGRESSION [None]
  - INJURY [None]
  - MONOPLEGIA [None]
  - RADICULOPATHY [None]
